FAERS Safety Report 8112456-1 (Version None)
Quarter: 2012Q1

REPORT INFORMATION
  Report Type: 
  Country: None (occurrence: None)
  Receive Date: 20120203
  Receipt Date: 20120201
  Transmission Date: 20120608
  Serious: No
  Sender: FDA-Public Use
  Company Number: US-PFIZER INC-2012028515

PATIENT
  Sex: Female
  Weight: 35.374 kg

DRUGS (1)
  1. CHILDREN'S ADVIL [Suspect]
     Indication: HEADACHE
     Dosage: UNK, AS NEEDED
     Route: 048
     Dates: start: 20120131, end: 20120201

REACTIONS (2)
  - THROAT TIGHTNESS [None]
  - HEADACHE [None]
